FAERS Safety Report 9160243 (Version 1)
Quarter: 2013Q1

REPORT INFORMATION
  Report Type: Report from Study
  Country: GB (occurrence: GB)
  Receive Date: 20130313
  Receipt Date: 20130313
  Transmission Date: 20140127
  Serious: Yes (Death, Hospitalization)
  Sender: FDA-Public Use
  Company Number: GB-ROCHE-1201060

PATIENT
  Sex: Female
  Weight: 93 kg

DRUGS (18)
  1. TOCILIZUMAB [Suspect]
     Indication: PRODUCT USED FOR UNKNOWN INDICATION
     Dosage: LAST DOSE PRIOR SAE: 21/MAY/2012
     Route: 065
     Dates: start: 20120125, end: 20120521
  2. PREDNISOLONE [Concomitant]
     Route: 065
  3. ENOXAPARIN [Concomitant]
     Route: 065
  4. RANITIDINE [Concomitant]
     Route: 065
  5. AMITRIPTYLINE [Concomitant]
     Route: 065
  6. SERETIDE [Concomitant]
     Dosage: 250 MDI, 2 PUFFS
     Route: 065
  7. CILESTE [Concomitant]
     Dosage: DUET
     Route: 065
  8. BUMETANIDE [Concomitant]
     Route: 065
  9. FOLIC ACID [Concomitant]
     Route: 065
  10. PREGABALIN [Concomitant]
     Route: 065
  11. LACTULOSE [Concomitant]
     Route: 065
  12. LEVOTHYROXINE [Concomitant]
     Route: 065
  13. PARACETAMOL [Concomitant]
     Route: 065
  14. HYDROCORTISONE [Concomitant]
     Route: 065
  15. SERTRALINE [Concomitant]
     Route: 065
  16. HALOPERIDOL [Concomitant]
     Route: 065
  17. SENNA [Concomitant]
     Route: 065
  18. SANDO K [Concomitant]
     Route: 065

REACTIONS (2)
  - Cerebrovascular disorder [Fatal]
  - Pneumonia [Recovered/Resolved]
